FAERS Safety Report 4647678-5 (Version None)
Quarter: 2005Q2

REPORT INFORMATION
  Report Type: 
  Country: None (occurrence: None)
  Receive Date: 20050427
  Receipt Date: 20050425
  Transmission Date: 20051028
  Serious: Yes (Hospitalization)
  Sender: FDA-Public Use
  Company Number: 05-03-0457

PATIENT
  Age: 39 Year
  Sex: Female

DRUGS (2)
  1. CLOZAPINE [Suspect]
     Indication: SCHIZOPHRENIA
     Dosage: 550MG HS ORAL
     Route: 048
     Dates: start: 19981023
  2. GEMFIBROZIL [Concomitant]

REACTIONS (2)
  - PULMONARY MASS [None]
  - SCAR [None]
